FAERS Safety Report 10349708 (Version 2)
Quarter: 2014Q3

REPORT INFORMATION
  Report Type: Spontaneous
  Country: VE (occurrence: VE)
  Receive Date: 20140730
  Receipt Date: 20140807
  Transmission Date: 20150326
  Serious: Yes (Hospitalization)
  Sender: FDA-Public Use
  Company Number: PHHY2014VE091760

PATIENT
  Age: 15 Year
  Sex: Female

DRUGS (5)
  1. KEPPRA [Concomitant]
     Active Substance: LEVETIRACETAM
     Dosage: UNK UKN, UNK
  2. CLONAC [Concomitant]
     Active Substance: DICLOFENAC SODIUM
     Indication: CONVULSION
     Dosage: 0.5 DF TID (HALF TABLET OF 2 MG IN THE MORNING, HALF TABLET AT NOON AND HALF TABLET AT NIGHT)
     Route: 048
  3. TRILEPTAL [Suspect]
     Active Substance: OXCARBAZEPINE
     Indication: CONVULSION
     Dosage: 450 MG, TID (THREE TIMES DAILY)
     Route: 048
     Dates: start: 2009
  4. LORATADINE. [Concomitant]
     Active Substance: LORATADINE
     Indication: ADENOIDAL DISORDER
     Dosage: UNK UKN, UNK
     Route: 048
  5. MACRODANTIN [Concomitant]
     Active Substance: NITROFURANTOIN
     Indication: NEUROGENIC BLADDER
     Dosage: UNK UKN, UNK
     Route: 048

REACTIONS (3)
  - Ovarian neoplasm [Recovered/Resolved]
  - Pelvic pain [Recovered/Resolved]
  - Menstruation irregular [Recovering/Resolving]

NARRATIVE: CASE EVENT DATE: 201311
